FAERS Safety Report 11385279 (Version 1)
Quarter: 2015Q3

REPORT INFORMATION
  Report Type: Spontaneous
  Country: US (occurrence: US)
  Receive Date: 20150811
  Receipt Date: 20150811
  Transmission Date: 20151125
  Serious: No
  Sender: FDA-Public Use
  Company Number: US-ELI_LILLY_AND_COMPANY-US201201009445

PATIENT
  Age: 27 Year
  Sex: Male

DRUGS (2)
  1. TESTOSTERONE. [Concomitant]
     Active Substance: TESTOSTERONE
  2. AXIRON [Suspect]
     Active Substance: TESTOSTERONE
     Dosage: 60 MG, UNK
     Route: 061
     Dates: start: 201111, end: 201112

REACTIONS (3)
  - Application site irritation [Unknown]
  - Acne [Unknown]
  - Application site pain [Unknown]
